FAERS Safety Report 15373297 (Version 2)
Quarter: 2018Q3

REPORT INFORMATION
  Report Type: Report from Study
  Country: AT (occurrence: AT)
  Receive Date: 20180912
  Receipt Date: 20180916
  Transmission Date: 20181010
  Serious: No
  Sender: FDA-Public Use
  Company Number: AT-AMGEN-AUTNI2018124702

PATIENT
  Age: 79 Year
  Sex: Female
  Weight: 65.8 kg

DRUGS (32)
  1. CARFILZOMIB [Suspect]
     Active Substance: CARFILZOMIB
     Dosage: 45 MG/M2, UNK
     Route: 042
     Dates: start: 20180910
  2. CIPRALEX [Concomitant]
     Active Substance: ESCITALOPRAM OXALATE
     Dosage: 10 MG, UNK
     Dates: start: 20170914
  3. RAMIPRIL. [Concomitant]
     Active Substance: RAMIPRIL
     Dosage: 2.5 MG, UNK
     Dates: start: 20180206
  4. PLATELETS [Concomitant]
     Active Substance: HUMAN PLATELET, ALLOGENIC
     Indication: THROMBOCYTOPENIA
     Dosage: 1 UNK, UNK
     Dates: start: 20180809, end: 20180830
  5. CARFILZOMIB [Suspect]
     Active Substance: CARFILZOMIB
     Indication: PLASMA CELL MYELOMA
     Dosage: 20 MG/M2, UNK
     Route: 042
     Dates: start: 20170612
  6. LASIX [Concomitant]
     Active Substance: FUROSEMIDE
     Dosage: 40 MG, UNK
     Dates: start: 20180323
  7. FORTECORTIN [Concomitant]
     Active Substance: DEXAMETHASONE
     Dosage: 8 MG, UNK
     Dates: start: 20170612
  8. KCL [Concomitant]
     Active Substance: POTASSIUM CHLORIDE
     Dosage: 40 ML, UNK
     Dates: start: 20180827, end: 20180827
  9. ALLOPURINOL. [Concomitant]
     Active Substance: ALLOPURINOL
     Dosage: 300 MG, UNK
     Dates: start: 20170612
  10. HYDAL [Concomitant]
     Active Substance: HYDROMORPHONE HYDROCHLORIDE
     Dosage: 1.3 MG, UNK
     Dates: start: 20170816
  11. BALDRIAN [Concomitant]
     Active Substance: VALERIAN
     Dosage: 20 GTT, UNK
     Dates: start: 20170914, end: 20170927
  12. KALIORAL [Concomitant]
     Dosage: 1 UNK, UNK
     Dates: start: 20170918, end: 20170918
  13. PARACETAMOL KABI [Concomitant]
     Active Substance: ACETAMINOPHEN
     Dosage: 100 ML, UNK
     Dates: start: 20170922, end: 20170926
  14. DEXAMETHASONE. [Concomitant]
     Active Substance: DEXAMETHASONE
     Indication: PLASMA CELL MYELOMA
     Dosage: 4?20 MG UNK
     Dates: start: 20170612
  15. FENTANYL. [Concomitant]
     Active Substance: FENTANYL
     Dosage: 12 MUG, UNK
     Dates: start: 201704
  16. AUGMENTIN [Concomitant]
     Active Substance: AMOXICILLIN\CLAVULANATE POTASSIUM
     Dosage: 1 G, UNK
     Dates: start: 20180530, end: 20180603
  17. PANTOLOC [Concomitant]
     Active Substance: PANTOPRAZOLE SODIUM
     Dosage: 20 MG, UNK
     Dates: start: 20180308
  18. BETNESOL [Concomitant]
     Dosage: 1 GTT, UNK
     Dates: start: 20170629, end: 20170701
  19. AVASTIN [Concomitant]
     Active Substance: BEVACIZUMAB
     Dosage: 1 ML, UNK
     Dates: start: 20170629, end: 20170629
  20. VOLTAREN [Concomitant]
     Active Substance: DICLOFENAC SODIUM
     Dosage: 1 UNK, UNK
     Dates: start: 20170920, end: 20170926
  21. XGEVA [Concomitant]
     Active Substance: DENOSUMAB
     Dosage: 120 MG, UNK
     Dates: start: 20180323
  22. THYREX [Concomitant]
     Active Substance: LEVOTHYROXINE SODIUM
     Dosage: 50 MUG, UNK
     Dates: start: 201105
  23. ELOMEL [Concomitant]
     Dosage: 500 ML, UNK
     Dates: start: 20180809, end: 20180813
  24. CLAVAMOX [Concomitant]
     Active Substance: AMOXICILLIN\CLAVULANATE POTASSIUM
     Dosage: 1 G, UNK
     Dates: start: 20170619, end: 20171216
  25. AQUAPHORIL [Concomitant]
     Active Substance: XIPAMIDE
     Dosage: 2 UNK, UNK
     Dates: start: 20180219, end: 20180308
  26. ZOFRAN [Concomitant]
     Active Substance: ONDANSETRON HYDROCHLORIDE
     Dosage: 4 MG, UNK
     Dates: start: 20180811
  27. URSOFALK [Concomitant]
     Active Substance: URSODIOL
     Dosage: 250 MG, UNK
     Dates: start: 20150214
  28. MOTILIUM [Concomitant]
     Active Substance: DOMPERIDONE
     Dosage: 10 MG, UNK
     Dates: start: 20170612
  29. PREDNISOLON [Concomitant]
     Active Substance: PREDNISOLONE
     Dosage: 2.5 MG, UNK
     Dates: start: 20180109, end: 20180206
  30. CARFILZOMIB [Suspect]
     Active Substance: CARFILZOMIB
     Dosage: 56 MG/M2, UNK
     Route: 042
  31. VITAMINS WITH MINERALS [Concomitant]
     Active Substance: MINERALS\VITAMINS
     Dosage: 1 UNK, UNK
     Dates: start: 20120604
  32. FRAGMIN [Concomitant]
     Active Substance: DALTEPARIN SODIUM
     Dosage: 5000 IU, UNK
     Dates: start: 20170612

REACTIONS (1)
  - Thrombocytopenia [Recovered/Resolved]

NARRATIVE: CASE EVENT DATE: 20180830
